FAERS Safety Report 10580992 (Version 3)
Quarter: 2016Q1

REPORT INFORMATION
  Report Type: Report from Study
  Country: JP (occurrence: JP)
  Receive Date: 20141113
  Receipt Date: 20160222
  Transmission Date: 20160525
  Serious: Yes (Other)
  Sender: FDA-Public Use
  Company Number: JP-ROCHE-1486603

PATIENT

DRUGS (2)
  1. RIBAVIRIN. [Suspect]
     Active Substance: RIBAVIRIN
     Indication: CHRONIC HEPATITIS C
     Dosage: 600 MG DAILY IN PATIENTS WITH A BODY WEIGHT OF LESSTHAN OR EQUAL TO 60 KG, 800 MG DAILY IN PATIENTS
     Route: 048
  2. SOFOSBUVIR [Suspect]
     Active Substance: SOFOSBUVIR
     Indication: CHRONIC HEPATITIS C
     Route: 048

REACTIONS (3)
  - Neutropenia [Unknown]
  - Hyperbilirubinaemia [Unknown]
  - Hyperglycaemia [Unknown]
